FAERS Safety Report 6663500-X (Version None)
Quarter: 2010Q1

REPORT INFORMATION
  Report Type: 
  Country: None (occurrence: None)
  Receive Date: 20100330
  Receipt Date: 20100330
  Transmission Date: 20100710
  Serious: Yes (Life-Threatening)
  Sender: FDA-Public Use
  Company Number: None

PATIENT
  Age: 80 Year
  Sex: Female
  Weight: 39.4629 kg

DRUGS (1)
  1. FLOVENT HFA [Suspect]
     Indication: RESPIRATORY DISORDER
     Dosage: 2 PUFFS TWICE DAILY
     Dates: start: 20100315, end: 20100322

REACTIONS (3)
  - CONDITION AGGRAVATED [None]
  - DRUG EFFECT DECREASED [None]
  - DYSPNOEA [None]
